FAERS Safety Report 14466317 (Version 1)
Quarter: 2018Q1

REPORT INFORMATION
  Report Type: Spontaneous
  Country: DE (occurrence: DE)
  Receive Date: 20180131
  Receipt Date: 20180131
  Transmission Date: 20180509
  Serious: Yes (Hospitalization, Other)
  Sender: FDA-Public Use
  Company Number: DE-AUROBINDO-AUR-APL-2018-003217

PATIENT
  Age: 59 Year
  Sex: Female
  Weight: 99 kg

DRUGS (2)
  1. LEVOFLOXACIN. [Suspect]
     Active Substance: LEVOFLOXACIN
     Indication: ANTIBIOTIC PROPHYLAXIS
     Dosage: 7 X 500MG
     Route: 048
     Dates: start: 201709
  2. LEVOFLOXACIN. [Suspect]
     Active Substance: LEVOFLOXACIN
     Indication: BRONCHITIS
     Dosage: 10 X 500MG
     Route: 048
     Dates: start: 201610

REACTIONS (12)
  - Visual impairment [Not Recovered/Not Resolved]
  - Myalgia [Unknown]
  - Arrhythmia [Unknown]
  - Aphasia [Unknown]
  - Panic attack [Unknown]
  - Neuropathy peripheral [Unknown]
  - Depression [Unknown]
  - Impaired work ability [Unknown]
  - Tendon pain [Unknown]
  - Pain in extremity [Unknown]
  - Joint dislocation [Recovered/Resolved with Sequelae]
  - Tendonitis [Unknown]

NARRATIVE: CASE EVENT DATE: 2016
